FAERS Safety Report 9086633 (Version 3)
Quarter: 2013Q1

REPORT INFORMATION
  Report Type: Spontaneous
  Country: JP (occurrence: JP)
  Receive Date: 20130131
  Receipt Date: 20130325
  Transmission Date: 20140127
  Serious: Yes (Hospitalization, Disabling, Congenital Anomaly)
  Sender: FDA-Public Use
  Company Number: JP-BRISTOL-MYERS SQUIBB COMPANY-17318551

PATIENT
  Age: 75 Year
  Sex: Female
  Weight: 63 kg

DRUGS (7)
  1. ERBITUX SOLN FOR INF 5MG/ML [Suspect]
     Indication: RECTOSIGMOID CANCER
     Dosage: 11 COURSE 400MG 1 IN 1 WK
     Route: 041
     Dates: start: 20120517, end: 20121108
  2. CAMPTO [Suspect]
     Indication: COLON CANCER
     Dosage: THIRD DOSE
     Route: 041
     Dates: start: 20120517, end: 20120621
  3. IRINOTECAN HCL [Suspect]
     Indication: RECTOSIGMOID CANCER
     Dosage: 12JUL12-27SEP12:5CYC;135MG;77DAYS;180MG 2 IN 1 M?11OCT12-01NOV12:3CYC;21DAYS;135MG
     Route: 041
     Dates: start: 20120712, end: 20121101
  4. ISOVORIN [Concomitant]
     Indication: COLON CANCER
     Dosage: 17MAY12-21-JUN-12:3 CYC?250MG FROM 12JUL12-27SEP12 5 CYC.?180MG 11 OCT12 - 01NOV12 3 CYC
     Route: 041
     Dates: start: 20120517, end: 20121101
  5. 5-FLUOROURACIL [Concomitant]
     Indication: RECTOSIGMOID CANCER
     Dosage: 17MAY12-21JUN12:3CYC?3500MG-12JUL12-27SEP12;5CYC;3500MG?11OCT12-01NOV12 3CYC;2360MG
     Route: 041
     Dates: start: 20120517, end: 20121101
  6. LASIX [Concomitant]
     Indication: OEDEMA
     Dosage: 60MG:25OCT-17DEC12.40MG:18DEC12-ONG
     Route: 048
  7. ALDACTONE [Concomitant]
     Indication: OEDEMA
     Dosage: 25MG:26JUL12-28NOV12.50MG:29NOV12-ONG
     Route: 048
     Dates: start: 20120726

REACTIONS (2)
  - Hypoalbuminaemia [Recovering/Resolving]
  - Blood alkaline phosphatase increased [Recovered/Resolved]
